FAERS Safety Report 8234044-9 (Version None)
Quarter: 2012Q1

REPORT INFORMATION
  Report Type: 
  Country: None (occurrence: None)
  Receive Date: 20120326
  Receipt Date: 20120326
  Transmission Date: 20120608
  Serious: Yes (Hospitalization, Other)
  Sender: FDA-Public Use
  Company Number: None

PATIENT
  Sex: Female
  Weight: 73.028 kg

DRUGS (2)
  1. MEGESTROL ACETATE [Suspect]
     Indication: ABNORMAL LOSS OF WEIGHT
     Dosage: MEGESTROL ACETATE 40MG/ML
     Route: 048
     Dates: start: 20120227, end: 20120323
  2. MEGESTROL ACETATE [Suspect]

REACTIONS (1)
  - DEEP VEIN THROMBOSIS [None]
